FAERS Safety Report 8921770 (Version 2)
Quarter: 2013Q1

REPORT INFORMATION
  Report Type: Spontaneous
  Country: CH (occurrence: CH)
  Receive Date: 20121121
  Receipt Date: 20130118
  Transmission Date: 20140127
  Serious: Yes (Life-Threatening)
  Sender: FDA-Public Use
  Company Number: CH-ROCHE-1156619

PATIENT
  Age: 61 Year
  Sex: Male

DRUGS (11)
  1. PEGASYS [Suspect]
     Indication: HEPATITIS C
     Route: 058
     Dates: start: 20120625, end: 20120924
  2. COPEGUS [Suspect]
     Indication: HEPATITIS C
     Route: 048
     Dates: start: 20120625
  3. COPEGUS [Suspect]
     Route: 048
     Dates: start: 20120918, end: 20120924
  4. VICTRELIS [Suspect]
     Indication: HEPATITIS C
     Dosage: 4 UNITS THREE TIMES IN DAY
     Route: 048
     Dates: start: 20120723, end: 20120924
  5. BRUFEN [Suspect]
     Indication: INFLUENZA LIKE ILLNESS
     Route: 048
     Dates: start: 20120903, end: 20120924
  6. COVERSUM COMBI [Concomitant]
     Route: 065
     Dates: start: 2011, end: 20120924
  7. DEANXIT [Concomitant]
     Route: 065
     Dates: start: 2011, end: 20120924
  8. SEROQUEL [Concomitant]
     Route: 065
     Dates: start: 20120903, end: 20120924
  9. MOTILIUM (SWITZERLAND) [Concomitant]
     Route: 065
     Dates: start: 20120903, end: 20120924
  10. NEXIUM [Concomitant]
     Route: 065
     Dates: start: 20120903, end: 20120924
  11. CYANOCOBALAMIN [Concomitant]
     Route: 065
     Dates: start: 20120917

REACTIONS (7)
  - Pancytopenia [Recovered/Resolved]
  - Sepsis [Recovered/Resolved with Sequelae]
  - Agranulocytosis [Recovered/Resolved with Sequelae]
  - Mucosal inflammation [Recovering/Resolving]
  - Anal ulcer [Recovering/Resolving]
  - Pneumonia [Recovering/Resolving]
  - Diarrhoea [Recovered/Resolved]
